FAERS Safety Report 19403985 (Version 1)
Quarter: 2021Q2

REPORT INFORMATION
  Report Type: Spontaneous
  Country: LV (occurrence: LV)
  Receive Date: 20210610
  Receipt Date: 20210610
  Transmission Date: 20210717
  Serious: Yes (Hospitalization, Other)
  Sender: FDA-Public Use
  Company Number: LV-JNJFOC-20210620623

PATIENT
  Age: 55 Year
  Sex: Female

DRUGS (1)
  1. XARELTO [Suspect]
     Active Substance: RIVAROXABAN
     Indication: ATRIAL FIBRILLATION
     Dosage: 20 MG, QD
     Route: 048

REACTIONS (7)
  - Essential hypertension [Unknown]
  - Paraplegia [Not Recovered/Not Resolved]
  - Chest pain [Unknown]
  - Hypertension [Unknown]
  - Spinal cord haemorrhage [Unknown]
  - Myelopathy [Unknown]
  - Spinal cord haematoma [Unknown]

NARRATIVE: CASE EVENT DATE: 20210415
